FAERS Safety Report 21834947 (Version 2)
Quarter: 2024Q1

REPORT INFORMATION
  Report Type: Report from Study
  Country: US (occurrence: US)
  Receive Date: 20230109
  Receipt Date: 20240201
  Transmission Date: 20240409
  Serious: No
  Sender: FDA-Public Use
  Company Number: US-GSK-US2023000312

PATIENT
  Sex: Female

DRUGS (1)
  1. BELIMUMAB [Suspect]
     Active Substance: BELIMUMAB
     Indication: Systemic lupus erythematosus
     Dosage: UNK

REACTIONS (6)
  - Abdominal discomfort [Unknown]
  - Headache [Unknown]
  - Bone pain [Unknown]
  - Fatigue [Unknown]
  - Peripheral coldness [Unknown]
  - Product dose omission issue [Unknown]
